FAERS Safety Report 18096153 (Version 1)
Quarter: 2020Q3

REPORT INFORMATION
  Report Type: Spontaneous
  Country: MY (occurrence: MY)
  Receive Date: 20200731
  Receipt Date: 20200731
  Transmission Date: 20201103
  Serious: Yes (Other)
  Sender: FDA-Public Use
  Company Number: MY-ROCHE-2648617

PATIENT
  Age: 51 Year
  Sex: Female

DRUGS (2)
  1. GAZYVA [Suspect]
     Active Substance: OBINUTUZUMAB
     Indication: B-CELL LYMPHOMA
     Dosage: PART OF 6 CYCLES OF GAZYVA AND BENDAMUSTINE
     Route: 042
  2. BENDAMUSTINE [Suspect]
     Active Substance: BENDAMUSTINE
     Indication: B-CELL LYMPHOMA
     Dosage: PART OF 6 CYCLES OF GAZYVA AND BENDAMUSTINE
     Route: 042

REACTIONS (1)
  - Leukopenia [Unknown]
